FAERS Safety Report 24362190 (Version 1)
Quarter: 2024Q3

REPORT INFORMATION
  Report Type: Spontaneous
  Country: ES (occurrence: ES)
  Receive Date: 20240925
  Receipt Date: 20240925
  Transmission Date: 20241017
  Serious: Yes (Other)
  Sender: HIKMA
  Company Number: ES-HIKMA PHARMACEUTICALS USA INC.-ES-H14001-24-08694

PATIENT

DRUGS (14)
  1. CARBOPLATIN [Suspect]
     Active Substance: CARBOPLATIN
     Indication: Chemotherapy
     Dosage: UNKNOWN
     Route: 065
     Dates: start: 20231102, end: 20240108
  2. PACLITAXEL [Suspect]
     Active Substance: PACLITAXEL
     Indication: Chemotherapy
     Dosage: UNKNOWN
     Route: 065
     Dates: start: 20231102, end: 20240108
  3. PEMBROLIZUMAB [Suspect]
     Active Substance: PEMBROLIZUMAB
     Indication: Chemotherapy
     Dosage: UNKNOWN
     Route: 065
     Dates: start: 20231102, end: 20240108
  4. CETIRIZINE [Concomitant]
     Active Substance: CETIRIZINE HYDROCHLORIDE
     Indication: Pruritus
     Dosage: UNKNOWN
     Route: 048
     Dates: start: 20240525
  5. DIAZEPAM [Concomitant]
     Active Substance: DIAZEPAM
     Indication: Insomnia
     Dosage: UNKNOWN
     Route: 048
     Dates: start: 19980525
  6. GABAPENTIN [Concomitant]
     Active Substance: GABAPENTIN
     Indication: Peripheral sensory neuropathy
     Dosage: UNKNOWN
     Route: 048
     Dates: start: 20240525
  7. HYDROXYZINE HYDROCHLORIDE [Concomitant]
     Active Substance: HYDROXYZINE HYDROCHLORIDE
     Indication: Pruritus
     Dosage: UNKNOWN
     Route: 048
     Dates: start: 20240525
  8. LEVOTHYROXINE [Concomitant]
     Active Substance: LEVOTHYROXINE\LEVOTHYROXINE SODIUM
     Indication: Hypothyroidism
     Dosage: UNKNOWN
     Route: 048
     Dates: start: 20240525
  9. LORAZEPAM [Concomitant]
     Active Substance: LORAZEPAM
     Indication: Insomnia
     Dosage: UNKNOWN
     Route: 048
     Dates: start: 20010525
  10. LOSARTAN POTASSIUM [Concomitant]
     Active Substance: LOSARTAN POTASSIUM
     Indication: Hypertension
     Dosage: UNKNOWN
     Route: 048
     Dates: start: 20010525
  11. POLYETHYLENE GLYCOLS [Concomitant]
     Active Substance: POLYETHYLENE GLYCOLS
     Indication: Constipation prophylaxis
     Dosage: UNKNOWN
     Route: 048
     Dates: start: 20240827
  12. OMEPRAZOLE [Concomitant]
     Active Substance: OMEPRAZOLE
     Indication: Dyspepsia
     Dosage: UNKNOWN
     Route: 065
     Dates: start: 20240903
  13. ACETAMINOPHEN\TRAMADOL [Concomitant]
     Active Substance: ACETAMINOPHEN\TRAMADOL
     Indication: Arthralgia
     Dosage: UNKNOWN
     Route: 048
     Dates: start: 20240525
  14. CYANOCOBALAMIN\FOLIC ACID [Concomitant]
     Active Substance: CYANOCOBALAMIN\FOLIC ACID
     Indication: Prophylaxis
     Dosage: UNKNOWN
     Route: 065
     Dates: start: 20240827

REACTIONS (1)
  - Neoplasm progression [Unknown]
